FAERS Safety Report 4421254-1 (Version None)
Quarter: 2004Q3

REPORT INFORMATION
  Report Type: 
  Country: None (occurrence: None)
  Receive Date: 20040707
  Receipt Date: 20040520
  Transmission Date: 20050211
  Serious: No
  Sender: FDA-Public Use
  Company Number: SU-2004-002383

PATIENT
  Age: 82 Year
  Sex: Male
  Weight: 104.7809 kg

DRUGS (5)
  1. BENICAR HCT [Suspect]
     Indication: HYPERTENSION
     Dosage: 40.25 MG QD PO
     Route: 048
     Dates: start: 20040504, end: 20040518
  2. ASPIRIN [Concomitant]
  3. ZOCOR [Concomitant]
  4. PLAVIX [Concomitant]
  5. AVODART [Concomitant]

REACTIONS (1)
  - ANGIONEUROTIC OEDEMA [None]
